FAERS Safety Report 6422464-4 (Version None)
Quarter: 2009Q4

REPORT INFORMATION
  Report Type: 
  Country: None (occurrence: None)
  Receive Date: 20091030
  Receipt Date: 20091020
  Transmission Date: 20100525
  Serious: Yes (Hospitalization)
  Sender: FDA-Public Use
  Company Number: FR-AMGEN-US368931

PATIENT
  Sex: Female

DRUGS (1)
  1. ENBREL [Suspect]
     Indication: JUVENILE ARTHRITIS
     Route: 058
     Dates: start: 20030101, end: 20091001

REACTIONS (4)
  - HYPOAESTHESIA [None]
  - MOBILITY DECREASED [None]
  - MONONEURITIS [None]
  - VARICELLA [None]
